FAERS Safety Report 7416078-7 (Version None)
Quarter: 2011Q2

REPORT INFORMATION
  Report Type: 
  Country: None (occurrence: None)
  Receive Date: 20110414
  Receipt Date: 20110405
  Transmission Date: 20111010
  Serious: Yes (Hospitalization)
  Sender: FDA-Public Use
  Company Number: US-BAXTER-2011BH009260

PATIENT
  Sex: Female

DRUGS (1)
  1. DIANEAL [Suspect]
     Indication: PERITONEAL DIALYSIS
     Route: 033
     Dates: start: 20080302, end: 20110316

REACTIONS (4)
  - INTESTINAL OBSTRUCTION [None]
  - HERNIA [None]
  - PERITONEAL DIALYSIS COMPLICATION [None]
  - ASTHENIA [None]
